FAERS Safety Report 5821146-7 (Version None)
Quarter: 2008Q3

REPORT INFORMATION
  Report Type: 
  Country: None (occurrence: None)
  Receive Date: 20080724
  Receipt Date: 20080716
  Transmission Date: 20090109
  Serious: Yes (Other)
  Sender: FDA-Public Use
  Company Number: US-BAYER-200812049BCC

PATIENT
  Age: 76 Year
  Sex: Male
  Weight: 107 kg

DRUGS (4)
  1. ASPIRIN [Suspect]
     Indication: PROPHYLAXIS
     Dosage: TOTAL DAILY DOSE: 325 MG  UNIT DOSE: 325 MG
     Route: 048
     Dates: end: 20050101
  2. ONE-A-DAY MEN'S HEALTH FORMULA [Suspect]
     Indication: VITAMIN SUPPLEMENTATION
     Route: 048
  3. FERROUS SULFATE TAB [Concomitant]
  4. SYNTHROID [Concomitant]

REACTIONS (4)
  - AORTIC ANEURYSM REPAIR [None]
  - FAECES DISCOLOURED [None]
  - GASTRIC DISORDER [None]
  - STOMACH DISCOMFORT [None]
